FAERS Safety Report 6610141-6 (Version None)
Quarter: 2010Q1

REPORT INFORMATION
  Report Type: 
  Country: None (occurrence: None)
  Receive Date: 20100219
  Receipt Date: 20100205
  Transmission Date: 20100710
  Serious: Yes (Death)
  Sender: FDA-Public Use
  Company Number: 2010AL000933

PATIENT
  Age: 37 Year
  Sex: Male

DRUGS (3)
  1. CITALOPRAM HYDROBROMIDE [Suspect]
  2. CODEINE SULFATE [Concomitant]
  3. CLOZARIL [Concomitant]

REACTIONS (2)
  - DRUG LEVEL INCREASED [None]
  - OVERDOSE [None]
